FAERS Safety Report 16489682 (Version 1)
Quarter: 2019Q2

REPORT INFORMATION
  Report Type: Spontaneous
  Country: US (occurrence: US)
  Receive Date: 20190628
  Receipt Date: 20190628
  Transmission Date: 20190711
  Serious: No
  Sender: FDA-Public Use
  Company Number: US-PFIZER INC-2019278539

PATIENT
  Age: 84 Year
  Sex: Female

DRUGS (1)
  1. IBRANCE [Suspect]
     Active Substance: PALBOCICLIB
     Dosage: 125 MG, CYCLIC (PO(BY MOUTH) ONCE DAILY X 21 DAYS, THEN 7 DAYS OFF)
     Route: 048

REACTIONS (3)
  - Dizziness [Unknown]
  - Bronchitis [Unknown]
  - Cough [Unknown]
